FAERS Safety Report 8142826-7 (Version None)
Quarter: 2012Q1

REPORT INFORMATION
  Report Type: 
  Country: None (occurrence: None)
  Receive Date: 20120216
  Receipt Date: 20120213
  Transmission Date: 20120608
  Serious: Yes (Other)
  Sender: FDA-Public Use
  Company Number: SE-AMGEN-SWESP2012007884

PATIENT
  Age: 32 Year
  Sex: Female

DRUGS (1)
  1. CINACALCET HYDROCHLORIDE [Suspect]
     Indication: PRODUCT USED FOR UNKNOWN INDICATION
     Dosage: 90 MG, UNK

REACTIONS (3)
  - BLOOD POTASSIUM INCREASED [None]
  - CONSTIPATION [None]
  - NEUROLOGICAL SYMPTOM [None]
